FAERS Safety Report 4877681-1 (Version None)
Quarter: 2005Q4

REPORT INFORMATION
  Report Type: 
  Country: None (occurrence: None)
  Receive Date: 20051206
  Receipt Date: 20050831
  Transmission Date: 20060501
  Serious: No
  Sender: FDA-Public Use
  Company Number: USA0509106987

PATIENT
  Age: 62 Year
  Sex: Female

DRUGS (6)
  1. CYMBALTA [Suspect]
     Indication: HEADACHE
     Dosage: 60 MG
     Dates: start: 20050401
  2. TOPAMAX [Concomitant]
  3. INDERAL [Concomitant]
  4. AXERT [Concomitant]
  5. ZOMIG [Concomitant]
  6. FIORICET [Concomitant]

REACTIONS (1)
  - URTICARIA [None]
